FAERS Safety Report 22229484 (Version 2)
Quarter: 2023Q2

REPORT INFORMATION
  Report Type: Report from Study
  Country: PL (occurrence: None)
  Receive Date: 20230419
  Receipt Date: 20230425
  Transmission Date: 20230722
  Serious: Yes (Hospitalization)
  Sender: FDA-Public Use
  Company Number: PL-ROCHE-3331366

PATIENT
  Age: 60 Year
  Sex: Female
  Weight: 80 kg

DRUGS (5)
  1. ADO-TRASTUZUMAB EMTANSINE [Suspect]
     Active Substance: ADO-TRASTUZUMAB EMTANSINE
     Indication: HER2 positive breast cancer
     Dosage: ON 20/MAR/2023, SHE RECEIVED THE MOST RECENT DOSE OF  TRANSTUZUMAB EMTANSINE IV 288 MG PRIOR TO AE A
     Route: 042
     Dates: start: 20230227
  2. ATEZOLIZUMAB [Suspect]
     Active Substance: ATEZOLIZUMAB
     Indication: HER2 positive breast cancer
     Route: 041
     Dates: start: 20230227
  3. LETROZOLE [Concomitant]
     Active Substance: LETROZOLE
     Route: 048
     Dates: start: 20230207
  4. ETHAMSYLATE [Concomitant]
     Active Substance: ETHAMSYLATE
     Indication: Thrombocytopenia
     Dates: start: 20230307
  5. PREDNISONE [Concomitant]
     Active Substance: PREDNISONE
     Route: 048
     Dates: start: 20230328, end: 20230412

REACTIONS (1)
  - Blood glucose increased [Recovered/Resolved]

NARRATIVE: CASE EVENT DATE: 20230328
